FAERS Safety Report 4691226-0 (Version None)
Quarter: 2005Q2

REPORT INFORMATION
  Report Type: 
  Country: None (occurrence: None)
  Receive Date: 20050614
  Receipt Date: 20050530
  Transmission Date: 20051028
  Serious: Yes (Hospitalization, Other)
  Sender: FDA-Public Use
  Company Number: 2005069443

PATIENT
  Age: 79 Year
  Sex: Female
  Weight: 55 kg

DRUGS (4)
  1. ZOLOFT [Suspect]
     Indication: DEPRESSION
     Dosage: 50 MG (50 MG, 1 IN 1 D), ORAL
     Route: 048
     Dates: start: 20050418, end: 20050522
  2. CORTANCYL (PREDNISONE) [Concomitant]
  3. LEVOTHYROXINE SODIUM [Concomitant]
  4. VALSARTAN [Concomitant]

REACTIONS (4)
  - CONFUSIONAL STATE [None]
  - CONVERSION DISORDER [None]
  - HYPOCHLORAEMIA [None]
  - HYPONATRAEMIA [None]
